FAERS Safety Report 9283105 (Version 1)
Quarter: 2013Q2

REPORT INFORMATION
  Report Type: Spontaneous
  Country: US (occurrence: US)
  Receive Date: 20130510
  Receipt Date: 20130510
  Transmission Date: 20140414
  Serious: No
  Sender: FDA-Public Use
  Company Number: US-GLAXOSMITHKLINE-A0980485A

PATIENT
  Sex: Female
  Weight: 54.5 kg

DRUGS (11)
  1. TYKERB [Suspect]
     Dosage: 1250MG PER DAY
     Route: 048
  2. AFINITOR [Concomitant]
     Dosage: 5MG UNKNOWN
     Route: 048
  3. ZYRTEC [Concomitant]
     Dosage: 5MG UNKNOWN
     Route: 048
  4. LISINOPRIL [Concomitant]
     Dosage: 2.5MG UNKNOWN
     Route: 048
  5. ALDACTONE [Concomitant]
     Dosage: 25MG UNKNOWN
     Route: 048
  6. AROMASIN [Concomitant]
     Dosage: 25MG UNKNOWN
     Route: 048
  7. CALCIUM [Concomitant]
     Dosage: 500NG UNKNOWN
     Route: 048
  8. CO Q10 [Concomitant]
     Route: 048
  9. BETASERON [Concomitant]
  10. AMITRIPTYLIN [Concomitant]
     Route: 048
  11. LASIX [Concomitant]
     Route: 048

REACTIONS (3)
  - Weight increased [Not Recovered/Not Resolved]
  - Epistaxis [Unknown]
  - Diarrhoea [Unknown]
